FAERS Safety Report 7812942-5 (Version None)
Quarter: 2011Q4

REPORT INFORMATION
  Report Type: 
  Country: None (occurrence: None)
  Receive Date: 20111011
  Receipt Date: 20110928
  Transmission Date: 20120403
  Serious: Yes (Hospitalization, Other)
  Sender: FDA-Public Use
  Company Number: 2011SP045901

PATIENT
  Age: 16 Year
  Sex: Female

DRUGS (6)
  1. IMPLANON [Suspect]
     Indication: CONTRACEPTION
     Dosage: 1 DF, SC
     Route: 058
     Dates: start: 20110301, end: 20110901
  2. GESTODENE AND ETHINYL ESTRADIOL [Suspect]
     Indication: MENORRHAGIA
     Dosage: 1 DF, QD, PO
     Route: 048
     Dates: start: 20090101, end: 20110817
  3. GARDASIL (HUMAN PAPILLOMA VIRUS VACCINE) [Suspect]
     Indication: PROPHYLAXIS
     Dosage: 1 DF, IM
     Route: 030
     Dates: start: 20110404, end: 20110404
  4. GARDASIL (HUMAN PAPILLOMA VIRUS VACCINE) [Suspect]
     Indication: PROPHYLAXIS
     Dosage: 1 DF, IM
     Route: 030
     Dates: start: 20110301, end: 20110901
  5. GARDASIL (HUMAN PAPILLOMA VIRUS VACCINE) [Suspect]
     Indication: PROPHYLAXIS
     Dosage: 1 DF, IM
     Route: 030
     Dates: start: 20110119, end: 20110119
  6. GARDASIL (HUMAN PAPILLOMA VIRUS VACCINE) [Suspect]
     Indication: PROPHYLAXIS
     Dosage: 1 DF, IM
     Route: 030
     Dates: start: 20110901, end: 20110901

REACTIONS (7)
  - MIGRAINE [None]
  - PARAESTHESIA [None]
  - ASTHENIA [None]
  - DRUG INTERACTION [None]
  - GRAND MAL CONVULSION [None]
  - CEREBRAL VENOUS THROMBOSIS [None]
  - COMA SCALE ABNORMAL [None]
